FAERS Safety Report 13254361 (Version 2)
Quarter: 2017Q1

REPORT INFORMATION
  Report Type: Spontaneous
  Country: FR (occurrence: FR)
  Receive Date: 20170221
  Receipt Date: 20170313
  Transmission Date: 20170428
  Serious: Yes (Hospitalization, Other)
  Sender: FDA-Public Use
  Company Number: FR-AMGEN-FRASP2017025147

PATIENT
  Age: 73 Year
  Sex: Female
  Weight: 57.5 kg

DRUGS (9)
  1. MICARDIS PLUS [Concomitant]
     Active Substance: HYDROCHLOROTHIAZIDE\TELMISARTAN
     Dosage: UNK UNK, QD (40/12.5 IN THE MORNING)
  2. VENTOLIN [Concomitant]
     Active Substance: ALBUTEROL SULFATE
     Dosage: 100 X 4/DAY
  3. VERSATIS [Concomitant]
     Active Substance: LIDOCAINE
     Indication: THERMAL BURN
     Dosage: 1/2 PATCH ON EACH SOLE OF THE FOOT AT NIGHT
     Dates: start: 201610
  4. PROCORALAN [Concomitant]
     Active Substance: IVABRADINE
     Dosage: UNK UNK, BID (HALF IN MORNING AND EVENING)
  5. CRESTOR [Concomitant]
     Active Substance: ROSUVASTATIN CALCIUM
     Dosage: UNK UNK, QHS
  6. INEXIUM [Concomitant]
     Active Substance: ESOMEPRAZOLE
     Dosage: UNK UNK, QD (IN EVENING)
  7. SERETIDE [Concomitant]
     Active Substance: FLUTICASONE PROPIONATE\SALMETEROL XINAFOATE
     Dosage: UNK UNK, TID (1 INHALATION IN THE MORNING, LUNCHTIME AND EVENING)
  8. HYPERIUM [Concomitant]
     Active Substance: RILMENIDINE PHOSPHATE
     Dosage: 1 MG, QD (IN EVENING)
  9. PROLIA [Suspect]
     Active Substance: DENOSUMAB
     Indication: OSTEOPOROSIS POSTMENOPAUSAL
     Dosage: 60 MG/ML, UNK
     Route: 058
     Dates: start: 20160905

REACTIONS (12)
  - Abdominal pain upper [Not Recovered/Not Resolved]
  - Musculoskeletal pain [Unknown]
  - Pain [Recovering/Resolving]
  - Pain in extremity [Unknown]
  - Paraesthesia [Unknown]
  - Monoplegia [Not Recovered/Not Resolved]
  - Muscle spasms [Unknown]
  - Facial paralysis [Not Recovered/Not Resolved]
  - Oedema peripheral [Recovered/Resolved]
  - Pain in jaw [Recovering/Resolving]
  - Erythema [Not Recovered/Not Resolved]
  - Pyrexia [Unknown]

NARRATIVE: CASE EVENT DATE: 201610
